FAERS Safety Report 23087345 (Version 1)
Quarter: 2023Q4

REPORT INFORMATION
  Report Type: Spontaneous
  Country: IN (occurrence: IN)
  Receive Date: 20231020
  Receipt Date: 20231020
  Transmission Date: 20240109
  Serious: Yes (Other)
  Sender: FDA-Public Use
  Company Number: IN-MSNLABS-2023MSNLIT01737

PATIENT

DRUGS (11)
  1. PREGABALIN [Suspect]
     Active Substance: PREGABALIN
     Indication: Product used for unknown indication
     Dosage: 2-4/ DAY
     Route: 065
  2. PREGABALIN [Suspect]
     Active Substance: PREGABALIN
     Dosage: LAST 2-3 YEARS, GRADUALLY INCREASED THE AMOUNT OF PREGABALIN TO 20 CAPSULES (6000 MG)
     Route: 065
  3. PREGABALIN [Suspect]
     Active Substance: PREGABALIN
     Dosage: GRADUALLY INCREASED
     Route: 065
  4. PREGABALIN [Suspect]
     Active Substance: PREGABALIN
     Dosage: 2-4/DAY
     Route: 065
  5. PREGABALIN [Suspect]
     Active Substance: PREGABALIN
     Dosage: TAPERING ITS DOSE TO 150 MG/DAY
     Route: 065
  6. TRAMADOL [Suspect]
     Active Substance: TRAMADOL\TRAMADOL HYDROCHLORIDE
     Indication: Product used for unknown indication
     Route: 065
  7. TRAMADOL [Suspect]
     Active Substance: TRAMADOL\TRAMADOL HYDROCHLORIDE
     Dosage: AMOUNT OF TRAMADOL INCREASED TO 2-4 TABLETS/DAY DURING 2-3 MONTHS DURATION
     Route: 065
  8. TRAMADOL [Suspect]
     Active Substance: TRAMADOL\TRAMADOL HYDROCHLORIDE
     Dosage: 8-10 TABLETS DAILY
     Route: 065
  9. TRAMADOL [Suspect]
     Active Substance: TRAMADOL\TRAMADOL HYDROCHLORIDE
     Dosage: AMOUNT OF TRAMADOL INCREASED TO 2-4 TABLETS/DAY DURING 2-3 MONTHS DURATION
     Route: 065
  10. TRAMADOL [Suspect]
     Active Substance: TRAMADOL\TRAMADOL HYDROCHLORIDE
     Dosage: 8-10 TABLETS DAILY
     Route: 065
  11. TRAMADOL [Suspect]
     Active Substance: TRAMADOL\TRAMADOL HYDROCHLORIDE
     Dosage: 8-10 TABLETS DAILY, DOSE REDUCED
     Route: 065

REACTIONS (3)
  - Intentional overdose [Unknown]
  - Drug abuse [Recovered/Resolved]
  - Drug withdrawal syndrome [Recovering/Resolving]
